FAERS Safety Report 7473424-6 (Version None)
Quarter: 2011Q2

REPORT INFORMATION
  Report Type: 
  Country: None (occurrence: None)
  Receive Date: 20110503
  Receipt Date: 20110418
  Transmission Date: 20111010
  Serious: Yes (Hospitalization)
  Sender: FDA-Public Use
  Company Number: UTC-006450

PATIENT
  Age: 53 Year
  Sex: Male
  Weight: 123.1 kg

DRUGS (4)
  1. REMODULIN [Suspect]
     Indication: PULMONARY ARTERIAL HYPERTENSION
     Dosage: 54.72 UG/KG (0.04=38 UG/KG, 1 IN 1 MIN), INTRAVENOUS; 34.56 UG/KG (0.024 UG/KG, 1 IN 1 MIN), INTRAVE
     Route: 042
     Dates: start: 20100101
  2. REMODULIN [Suspect]
     Indication: PULMONARY ARTERIAL HYPERTENSION
     Dosage: 2.88 UG/KG (0.002 UG/KG, 1 IN 1 MIN), SUBCUTANEOUS
     Route: 058
     Dates: start: 20091001
  3. REVATIO [Concomitant]
  4. DIURETICS [Concomitant]

REACTIONS (4)
  - RENAL FAILURE [None]
  - DIARRHOEA [None]
  - DEHYDRATION [None]
  - PYREXIA [None]
